FAERS Safety Report 19949088 (Version 1)
Quarter: 2021Q4

REPORT INFORMATION
  Report Type: Spontaneous
  Country: US (occurrence: US)
  Receive Date: 20211013
  Receipt Date: 20211013
  Transmission Date: 20220303
  Serious: Yes (Other)
  Sender: FDA-Public Use
  Company Number: US-TOPROL-2021000221

PATIENT
  Age: 81 Year
  Sex: Female

DRUGS (3)
  1. METOPROLOL SUCCINATE [Suspect]
     Active Substance: METOPROLOL SUCCINATE
     Route: 048
     Dates: start: 20210927
  2. IRBESARTAN [Concomitant]
     Active Substance: IRBESARTAN
     Route: 065
  3. ELIQUIS [Concomitant]
     Active Substance: APIXABAN
     Route: 065

REACTIONS (10)
  - Atrial fibrillation [Unknown]
  - Chest discomfort [Unknown]
  - Anxiety [Unknown]
  - Diarrhoea [Unknown]
  - Malaise [Unknown]
  - Tension [Unknown]
  - Tension headache [Unknown]
  - Malaise [Unknown]
  - Abdominal pain upper [Unknown]
  - Product use in unapproved indication [Unknown]
